FAERS Safety Report 4426271-3 (Version None)
Quarter: 2004Q3

REPORT INFORMATION
  Report Type: 
  Country: None (occurrence: None)
  Receive Date: 20040811
  Receipt Date: 20040720
  Transmission Date: 20050211
  Serious: Yes (Hospitalization)
  Sender: FDA-Public Use
  Company Number: A02200402276

PATIENT
  Age: 83 Year
  Sex: Male

DRUGS (8)
  1. CORDARONE [Suspect]
     Dosage: 200 MG OD, ORAL
     Route: 048
     Dates: start: 20040415, end: 20040624
  2. XATRAL - (ALFUZOSIN) - TABLET - UNIT DOSE : UNKNOWN [Suspect]
     Dosage: ORAL
     Route: 048
     Dates: end: 20040624
  3. ZOLPIDEM TARTRATE [Suspect]
     Dosage: 10 MG OD, ORAL
     Route: 048
     Dates: end: 20040624
  4. ACETAMINOPHEN [Suspect]
     Dosage: 1 G TID, ORAL
     Route: 048
     Dates: start: 20040415, end: 20040623
  5. OMEPRAZOLE [Suspect]
     Dosage: 20 MG OD, ORAL
     Route: 048
     Dates: start: 20040415, end: 20040624
  6. SECTRAL [Concomitant]
  7. LASIX [Concomitant]
  8. MORPHINE SULFATE [Concomitant]

REACTIONS (1)
  - HEPATITIS CHOLESTATIC [None]
